FAERS Safety Report 6983421-2 (Version None)
Quarter: 2010Q3

REPORT INFORMATION
  Report Type: 
  Country: None (occurrence: None)
  Receive Date: 20100914
  Receipt Date: 20100914
  Transmission Date: 20110219
  Serious: Yes (Death, Hospitalization)
  Sender: FDA-Public Use
  Company Number: None

PATIENT
  Sex: Female
  Weight: 40.8691 kg

DRUGS (2)
  1. LENALIDOMIDE [Suspect]
     Indication: ACUTE MYELOID LEUKAEMIA
     Dosage: 50 MG QD D1-28 PO
     Route: 048
     Dates: start: 20100727
  2. AZACITIDINE [Suspect]
     Indication: ACUTE MYELOID LEUKAEMIA
     Dosage: 25MG/M2 D1-5 IV
     Route: 042
     Dates: start: 20100727

REACTIONS (7)
  - FEBRILE NEUTROPENIA [None]
  - GENERAL PHYSICAL HEALTH DETERIORATION [None]
  - OSTEOARTHRITIS [None]
  - PNEUMONIA [None]
  - RENAL FAILURE ACUTE [None]
  - RENAL IMPAIRMENT [None]
  - UNRESPONSIVE TO STIMULI [None]
